FAERS Safety Report 19039674 (Version 2)
Quarter: 2021Q2

REPORT INFORMATION
  Report Type: Spontaneous
  Country: US (occurrence: US)
  Receive Date: 20210322
  Receipt Date: 20210415
  Transmission Date: 20210717
  Serious: No
  Sender: FDA-Public Use
  Company Number: US-ASTRAZENECA-2021A162261

PATIENT
  Sex: Male
  Weight: 87.1 kg

DRUGS (1)
  1. BYDUREON [Suspect]
     Active Substance: EXENATIDE
     Indication: WEIGHT DECREASED
     Route: 058
     Dates: start: 20210308

REACTIONS (4)
  - Device malfunction [Unknown]
  - Injection site haemorrhage [Recovered/Resolved]
  - Device leakage [Unknown]
  - Wrong technique in device usage process [Unknown]
